FAERS Safety Report 18041691 (Version 1)
Quarter: 2020Q3

REPORT INFORMATION
  Report Type: Report from Study
  Country: None (occurrence: CA)
  Receive Date: 20200720
  Receipt Date: 20200720
  Transmission Date: 20201103
  Serious: Yes (Other)
  Sender: FDA-Public Use
  Company Number: CA-ABBVIE-20K-028-3222372-00

PATIENT
  Sex: Male

DRUGS (2)
  1. HUMIRA [Suspect]
     Active Substance: ADALIMUMAB
     Indication: CROHN^S DISEASE
     Route: 058
     Dates: start: 20150729
  2. HUMIRA [Suspect]
     Active Substance: ADALIMUMAB
     Route: 058

REACTIONS (16)
  - Fistula discharge [Not Recovered/Not Resolved]
  - Intestinal obstruction [Unknown]
  - Haemoglobin decreased [Not Recovered/Not Resolved]
  - Hypoaesthesia [Not Recovered/Not Resolved]
  - Skin ulcer [Unknown]
  - Carpal tunnel syndrome [Not Recovered/Not Resolved]
  - Blood iron decreased [Not Recovered/Not Resolved]
  - Muscle disorder [Not Recovered/Not Resolved]
  - Muscle spasms [Not Recovered/Not Resolved]
  - Pain [Not Recovered/Not Resolved]
  - Paraesthesia [Not Recovered/Not Resolved]
  - Pyoderma gangrenosum [Not Recovered/Not Resolved]
  - Crohn^s disease [Not Recovered/Not Resolved]
  - Gastrointestinal fistula [Not Recovered/Not Resolved]
  - Burning sensation [Not Recovered/Not Resolved]
  - Blood magnesium decreased [Not Recovered/Not Resolved]

NARRATIVE: CASE EVENT DATE: 2019
